FAERS Safety Report 7047776-5 (Version None)
Quarter: 2010Q4

REPORT INFORMATION
  Report Type: 
  Country: None (occurrence: None)
  Receive Date: 20101015
  Receipt Date: 20101011
  Transmission Date: 20110411
  Serious: Yes (Hospitalization)
  Sender: FDA-Public Use
  Company Number: US-PFIZER INC-2010102491

PATIENT
  Sex: Male
  Weight: 107.3 kg

DRUGS (17)
  1. ARGATROBAN [Suspect]
     Indication: HEPARIN-INDUCED THROMBOCYTOPENIA
     Dosage: 0.5 UG/KG/MIN
     Route: 042
     Dates: start: 20100807, end: 20100814
  2. ARGATROBAN [Suspect]
     Indication: DEEP VEIN THROMBOSIS
  3. ROCEPHIN [Concomitant]
  4. ALLOPURINOL [Concomitant]
  5. KEPPRA [Concomitant]
     Dosage: 500 MG, 2X/DAY
     Dates: start: 19820902
  6. VANCOMYCIN [Concomitant]
     Route: 042
  7. THIAMINE [Concomitant]
  8. MULTI-VITAMINS [Concomitant]
  9. FOLIC ACID [Concomitant]
  10. PROPOFOL [Concomitant]
  11. LEVAQUIN [Concomitant]
  12. ZOSYN [Concomitant]
  13. PERCOCET [Concomitant]
  14. LANTUS [Concomitant]
  15. WARFARIN [Concomitant]
  16. PEPCID [Concomitant]
  17. LEVOPHED [Concomitant]
     Route: 042

REACTIONS (1)
  - LIPASE INCREASED [None]
